FAERS Safety Report 6670772-4 (Version None)
Quarter: 2010Q2

REPORT INFORMATION
  Report Type: 
  Country: None (occurrence: None)
  Receive Date: 20100407
  Receipt Date: 20100331
  Transmission Date: 20101027
  Serious: Yes (Hospitalization)
  Sender: FDA-Public Use
  Company Number: PHHO2010KR04352

PATIENT
  Sex: Male
  Weight: 63 kg

DRUGS (1)
  1. AFINITOR [Suspect]
     Indication: PHAEOCHROMOCYTOMA
     Dosage: 10 MG DAILY
     Route: 048
     Dates: start: 20100115, end: 20100315

REACTIONS (6)
  - ABDOMINAL PAIN [None]
  - ASTHENIA [None]
  - BLOOD PRESSURE ABNORMAL [None]
  - LUNG CONSOLIDATION [None]
  - PNEUMONIA [None]
  - SEPTIC SHOCK [None]
